FAERS Safety Report 12166563 (Version 2)
Quarter: 2016Q2

REPORT INFORMATION
  Report Type: Spontaneous
  Country: US (occurrence: US)
  Receive Date: 20160309
  Receipt Date: 20160526
  Transmission Date: 20160815
  Serious: No
  Sender: FDA-Public Use
  Company Number: US-APOTEX-2016AP006604

PATIENT
  Sex: Male

DRUGS (1)
  1. FENTANYL TRANSDERMAL SYSTEM [Suspect]
     Active Substance: FENTANYL
     Indication: ANALGESIC THERAPY
     Dosage: 2 PACHES EVERY 48 HOURS
     Route: 065

REACTIONS (4)
  - Product substitution issue [Unknown]
  - Product adhesion issue [Unknown]
  - Withdrawal syndrome [Unknown]
  - Drug effect incomplete [Unknown]
